FAERS Safety Report 21341603 (Version 1)
Quarter: 2022Q3

REPORT INFORMATION
  Report Type: Other
  Country: KR (occurrence: None)
  Receive Date: 20220916
  Receipt Date: 20220916
  Transmission Date: 20221027
  Serious: Yes (Other)
  Sender: FDA-Public Use
  Company Number: KR-ROCHE-3179320

PATIENT
  Age: 53 Year
  Sex: Male

DRUGS (4)
  1. RITUXIMAB [Suspect]
     Active Substance: RITUXIMAB
     Indication: Encephalitis autoimmune
     Route: 042
  2. LEVETIRACETAM [Concomitant]
     Active Substance: LEVETIRACETAM
  3. LACOSAMIDE [Concomitant]
     Active Substance: LACOSAMIDE
  4. ACYCLOVIR [Concomitant]
     Active Substance: ACYCLOVIR
     Indication: Encephalitis viral
     Route: 042

REACTIONS (1)
  - Generalised tonic-clonic seizure [Unknown]
